FAERS Safety Report 9973367 (Version 3)
Quarter: 2014Q1

REPORT INFORMATION
  Report Type: Spontaneous
  Country: IT (occurrence: IT)
  Receive Date: 20140306
  Receipt Date: 20140327
  Transmission Date: 20141002
  Serious: Yes (Hospitalization)
  Sender: FDA-Public Use
  Company Number: IT-TEVA-465933ISR

PATIENT
  Age: 86 Year
  Sex: Female

DRUGS (5)
  1. GABAPENTIN [Suspect]
     Indication: SEDATION
     Route: 048
     Dates: start: 20140122, end: 20140124
  2. SEROQUEL - 50 MG COMPRESSE A RILASCIO PROLUNGATO - ASTRAZENECA S.P.A. [Suspect]
     Indication: SEDATION
     Route: 048
     Dates: start: 20140122, end: 20140124
  3. TEGRETOL - 400 MG COMPRESSE - NOVARTIS FARMA S.P.A. [Suspect]
     Indication: SEDATION
     Route: 048
     Dates: start: 20140122, end: 20140124
  4. PLAVIX 75 - COMPRESSE FILMRIVESTITE [Concomitant]
     Indication: ATRIAL FIBRILLATION
     Route: 048
  5. ACETYLSALICYLIC ACID [Concomitant]
     Indication: ATRIAL FIBRILLATION
     Route: 048

REACTIONS (3)
  - Altered state of consciousness [Recovering/Resolving]
  - Sopor [Recovering/Resolving]
  - Off label use [Unknown]
